FAERS Safety Report 14863341 (Version 1)
Quarter: 2018Q2

REPORT INFORMATION
  Report Type: Spontaneous
  Country: CA (occurrence: CA)
  Receive Date: 20180508
  Receipt Date: 20180508
  Transmission Date: 20180711
  Serious: Yes (Disabling)
  Sender: FDA-Public Use
  Company Number: CA-TEVA-2018-CA-888524

PATIENT
  Age: 77 Year
  Sex: Female
  Weight: 59.93 kg

DRUGS (6)
  1. HYDROXYCHLOROQUINE [Concomitant]
     Active Substance: HYDROXYCHLOROQUINE
  2. CALCIUM [Concomitant]
     Active Substance: CALCIUM
  3. EURO D [Concomitant]
  4. ASA [Concomitant]
     Active Substance: ASPIRIN
  5. QUINAPRIL. [Concomitant]
     Active Substance: QUINAPRIL
  6. RISEDRONATE [Suspect]
     Active Substance: RISEDRONATE SODIUM
     Indication: OSTEOPOROSIS
     Route: 048

REACTIONS (4)
  - Gingival discomfort [Recovered/Resolved]
  - Glossodynia [Recovered/Resolved]
  - Swollen tongue [Recovered/Resolved]
  - Oral pain [Recovered/Resolved]
